FAERS Safety Report 7949859-1 (Version None)
Quarter: 2011Q4

REPORT INFORMATION
  Report Type: 
  Country: None (occurrence: None)
  Receive Date: 20111130
  Receipt Date: 20111118
  Transmission Date: 20120403
  Serious: No
  Sender: FDA-Public Use
  Company Number: US-B.I. PHARMACEUTICALS,INC./RIDGEFIELD-2011-BP-22372BP

PATIENT
  Sex: Male

DRUGS (17)
  1. PRADAXA [Suspect]
     Indication: ATRIAL FIBRILLATION
     Dosage: 300 MG
     Route: 048
     Dates: start: 20110111, end: 20111007
  2. KLONOPIN [Concomitant]
     Indication: ANXIETY
     Dosage: 0.5 MG
     Route: 048
     Dates: start: 20110601
  3. SPIRONOLACTONE [Concomitant]
     Indication: HYPERTENSION
  4. REQUIP [Concomitant]
     Indication: RESTLESS LEGS SYNDROME
     Dosage: 6 MG
     Route: 048
     Dates: start: 20060101
  5. VITAMIN B1 TAB [Concomitant]
     Indication: MEMORY IMPAIRMENT
     Dosage: 100 MG
     Route: 048
     Dates: start: 20110601
  6. TERAZOSIN HCL [Concomitant]
  7. COREG [Concomitant]
     Indication: HEART RATE IRREGULAR
  8. EXELON [Concomitant]
     Indication: MEMORY IMPAIRMENT
     Route: 062
     Dates: start: 20110601
  9. ANDROGEL [Concomitant]
     Indication: LIBIDO DISORDER
     Route: 062
  10. EXELON [Concomitant]
     Indication: MEMORY IMPAIRMENT
  11. COREG [Concomitant]
     Indication: HYPERTENSION
     Dosage: 50 MG
     Route: 048
     Dates: start: 20060101
  12. AVODART [Concomitant]
     Indication: PROSTATIC DISORDER
     Dosage: 0.5 MG
     Route: 048
     Dates: start: 20060101
  13. AVODART [Concomitant]
     Indication: BENIGN PROSTATIC HYPERPLASIA
  14. PRADAXA [Suspect]
     Indication: BLOOD PRESSURE FLUCTUATION
  15. VITAMIN B-12 [Concomitant]
     Indication: MEMORY IMPAIRMENT
     Dosage: 2500 MCG
     Route: 048
     Dates: start: 20110601
  16. NITROLINGUAL [Concomitant]
     Indication: ANGINA PECTORIS
  17. NITROLINGUAL [Concomitant]
     Indication: CARDIAC DISORDER

REACTIONS (13)
  - ANXIETY [None]
  - RETCHING [None]
  - VOMITING [None]
  - INTESTINAL HAEMORRHAGE [None]
  - THROAT IRRITATION [None]
  - REGURGITATION [None]
  - OESOPHAGEAL DISCOMFORT [None]
  - RASH MACULAR [None]
  - MEMORY IMPAIRMENT [None]
  - SENSATION OF FOREIGN BODY [None]
  - OESOPHAGEAL PAIN [None]
  - BLOOD URINE PRESENT [None]
  - CHOKING [None]
